FAERS Safety Report 16375563 (Version 1)
Quarter: 2019Q2

REPORT INFORMATION
  Report Type: Spontaneous
  Country: IT (occurrence: IT)
  Receive Date: 20190531
  Receipt Date: 20190531
  Transmission Date: 20190711
  Serious: Yes (Other)
  Sender: FDA-Public Use
  Company Number: IT-AUROBINDO-AUR-APL-2019-029775

PATIENT

DRUGS (1)
  1. IBUPROFEN. [Suspect]
     Active Substance: IBUPROFEN
     Indication: DYSMENORRHOEA
     Dosage: UNK
     Route: 065

REACTIONS (7)
  - Rash [Recovering/Resolving]
  - Angioedema [Recovering/Resolving]
  - Depressed level of consciousness [Recovering/Resolving]
  - Abdominal pain [Recovering/Resolving]
  - Dyspnoea [Recovering/Resolving]
  - Throat tightness [Recovering/Resolving]
  - Anaphylactic reaction [Recovering/Resolving]
